FAERS Safety Report 19783869 (Version 1)
Quarter: 2021Q3

REPORT INFORMATION
  Report Type: Spontaneous
  Country: US (occurrence: US)
  Receive Date: 20210902
  Receipt Date: 20210902
  Transmission Date: 20211014
  Serious: Yes (Life-Threatening)
  Sender: FDA-Public Use
  Company Number: None

PATIENT
  Age: 52 Year
  Sex: Female
  Weight: 119 kg

DRUGS (2)
  1. DEFINITY [Concomitant]
     Active Substance: PERFLUTREN
  2. DEFINITY [Suspect]
     Active Substance: PERFLUTREN
     Dates: start: 20210813, end: 20210813

REACTIONS (2)
  - Back pain [None]
  - Chest pain [None]

NARRATIVE: CASE EVENT DATE: 20210813
